FAERS Safety Report 9445835 (Version 1)
Quarter: 2013Q3

REPORT INFORMATION
  Report Type: Spontaneous
  Country: US (occurrence: US)
  Receive Date: 20130807
  Receipt Date: 20130807
  Transmission Date: 20140515
  Serious: No
  Sender: FDA-Public Use
  Company Number: US-BAYER-2013-095365

PATIENT
  Sex: Female

DRUGS (3)
  1. MIDOL [Suspect]
     Indication: DYSMENORRHOEA
  2. MIDOL MENSTRUAL COMPLETE FORMULA [Suspect]
     Indication: DYSMENORRHOEA
  3. MIDOL EXTENDED RELIEF CAPLET [Suspect]
     Indication: DYSMENORRHOEA

REACTIONS (1)
  - Drug screen positive [None]
